FAERS Safety Report 24217140 (Version 1)
Quarter: 2024Q3

REPORT INFORMATION
  Report Type: Spontaneous
  Country: IL (occurrence: IL)
  Receive Date: 20240816
  Receipt Date: 20240816
  Transmission Date: 20241016
  Serious: Yes (Other)
  Sender: AMGEN
  Company Number: IL-AMGEN-ISRSP2024160318

PATIENT

DRUGS (1)
  1. TEPEZZA [Suspect]
     Active Substance: TEPROTUMUMAB-TRBW
     Indication: Product used for unknown indication
     Dosage: UNK
     Route: 065

REACTIONS (16)
  - Deafness [Unknown]
  - Encephalopathy [Unknown]
  - Myalgia [Unknown]
  - Gingival recession [Unknown]
  - Cough [Unknown]
  - Malaise [Unknown]
  - Aphthous ulcer [Unknown]
  - Skin disorder [Unknown]
  - Diplopia [Unknown]
  - Vitiligo [Unknown]
  - Weight decreased [Unknown]
  - Tinnitus [Unknown]
  - Amenorrhoea [Recovered/Resolved]
  - Headache [Unknown]
  - Diarrhoea [Unknown]
  - Hyperglycaemia [Unknown]
